FAERS Safety Report 10145165 (Version 1)
Quarter: 2014Q2

REPORT INFORMATION
  Report Type: Spontaneous
  Country: US (occurrence: US)
  Receive Date: 20140501
  Receipt Date: 20140501
  Transmission Date: 20141212
  Serious: No
  Sender: FDA-Public Use
  Company Number: US-BIOGENIDEC-2013BI110889

PATIENT
  Sex: Female

DRUGS (9)
  1. TECFIDERA [Suspect]
     Indication: RELAPSING-REMITTING MULTIPLE SCLEROSIS
     Route: 048
     Dates: start: 20131011
  2. TECFIDERA [Suspect]
     Indication: RELAPSING-REMITTING MULTIPLE SCLEROSIS
     Route: 048
     Dates: start: 20131101
  3. AMITRIPTYLINE HCL [Concomitant]
  4. BACLOFEN [Concomitant]
  5. CITALOPRAM HYDROBROMIDE [Concomitant]
  6. GABAPENTIN [Concomitant]
  7. OXYBUTYNIN CHLORIDE [Concomitant]
  8. PRIMIDONE [Concomitant]
  9. TIZANIDINE HCL [Concomitant]

REACTIONS (3)
  - Gastric disorder [Recovered/Resolved]
  - Flushing [Unknown]
  - Pruritus [Recovered/Resolved]
